FAERS Safety Report 4754777-6 (Version None)
Quarter: 2005Q3

REPORT INFORMATION
  Report Type: 
  Country: None (occurrence: None)
  Receive Date: 20050829
  Receipt Date: 20050822
  Transmission Date: 20060218
  Serious: No
  Sender: FDA-Public Use
  Company Number: 2005UW12501

PATIENT
  Age: 10 Year
  Sex: Male

DRUGS (5)
  1. SEROQUEL [Suspect]
     Route: 048
  2. DEPAKOTE [Concomitant]
  3. STRATTERA [Concomitant]
  4. TRILEPTAL [Concomitant]
  5. CHLORAL HYDRATE [Concomitant]

REACTIONS (1)
  - NEUTROPENIA [None]
